FAERS Safety Report 9819034 (Version 3)
Quarter: 2014Q1

REPORT INFORMATION
  Report Type: Spontaneous
  Country: DE (occurrence: DE)
  Receive Date: 20140115
  Receipt Date: 20140121
  Transmission Date: 20141002
  Serious: Yes (Life-Threatening, Hospitalization, Other)
  Sender: FDA-Public Use
  Company Number: DE-PFIZER INC-2014009875

PATIENT
  Age: 48 Year
  Sex: Female
  Weight: 75 kg

DRUGS (8)
  1. PANTOZOL [Suspect]
     Dosage: 440 MG, (14 TABLETS OF 20 MG, 4 TABLETS OF 40 MG), SINGLE
     Route: 048
     Dates: start: 201401, end: 201401
  2. ZOPICLONE [Suspect]
     Dosage: 150 MG, UNK
     Route: 048
     Dates: start: 201401, end: 201401
  3. AMITRIPTYLINE [Suspect]
     Dosage: 2.5 G, UNK
     Route: 048
     Dates: start: 201401, end: 201401
  4. ACETYLCYSTEINE [Suspect]
     Dosage: UNK
     Route: 048
     Dates: start: 201401, end: 201401
  5. MAGNESIUM [Suspect]
     Dosage: UNK
     Route: 048
     Dates: start: 201401, end: 201401
  6. SACCHAROMYCES BOULARDII [Suspect]
     Dosage: UNK
     Route: 048
     Dates: start: 201401, end: 201401
  7. ARTICHOKE [Suspect]
     Dosage: UNK
     Route: 048
     Dates: start: 201401, end: 201401
  8. ALCOHOL [Suspect]
     Dosage: UNK
     Route: 048
     Dates: start: 201401, end: 201401

REACTIONS (8)
  - Overdose [Unknown]
  - Suicide attempt [Unknown]
  - Mydriasis [Unknown]
  - Pupillary reflex impaired [Unknown]
  - Dehydration [Unknown]
  - Choreoathetosis [Unknown]
  - Areflexia [Unknown]
  - Delirium [Unknown]
